FAERS Safety Report 8116939-X (Version None)
Quarter: 2012Q1

REPORT INFORMATION
  Report Type: 
  Country: None (occurrence: None)
  Receive Date: 20120206
  Receipt Date: 20120126
  Transmission Date: 20120608
  Serious: Yes (Other)
  Sender: FDA-Public Use
  Company Number: CZ-BAXTER-2012BH002597

PATIENT
  Age: 5 Year
  Sex: Female
  Weight: 16 kg

DRUGS (3)
  1. GAMMAGARD LIQUID [Suspect]
     Indication: IMMUNODEFICIENCY
     Route: 042
     Dates: start: 20120120, end: 20120120
  2. AMOXICILLIN AND CLAVULANATE POTASSIUM [Concomitant]
     Indication: ANTIBIOTIC PROPHYLAXIS
     Route: 048
     Dates: start: 20110301
  3. FLUTICASONE PROPIONATE [Concomitant]
     Indication: COUGH
     Route: 048
     Dates: start: 20101213

REACTIONS (7)
  - NEGATIVISM [None]
  - VASOCONSTRICTION [None]
  - PYREXIA [None]
  - ERYTHEMA [None]
  - BLOOD PRESSURE INCREASED [None]
  - HEADACHE [None]
  - RESTLESSNESS [None]
